FAERS Safety Report 16076851 (Version 1)
Quarter: 2019Q1

REPORT INFORMATION
  Report Type: Spontaneous
  Country: US (occurrence: US)
  Receive Date: 20190315
  Receipt Date: 20190315
  Transmission Date: 20190418
  Serious: Yes (Other)
  Sender: FDA-Public Use
  Company Number: US-ELI_LILLY_AND_COMPANY-US201903000772

PATIENT
  Age: 40 Year
  Sex: Female

DRUGS (3)
  1. FLUOXETINE HYDROCHLORIDE. [Suspect]
     Active Substance: FLUOXETINE HYDROCHLORIDE
     Indication: ALCOHOL DETOXIFICATION
     Dosage: UNK UNK, UNKNOWN
     Route: 065
  2. BUSPIRONE [Suspect]
     Active Substance: BUSPIRONE HYDROCHLORIDE
     Indication: ALCOHOL DETOXIFICATION
     Dosage: UNK, UNKNOWN
     Route: 065
  3. TRAZODONE [Concomitant]
     Active Substance: TRAZODONE HYDROCHLORIDE
     Indication: ALCOHOL DETOXIFICATION
     Dosage: UNK, UNKNOWN
     Route: 065

REACTIONS (4)
  - Hyperprolactinaemia [Recovered/Resolved]
  - Plasma cell mastitis [Recovered/Resolved]
  - Off label use [Unknown]
  - Maternal exposure during breast feeding [Unknown]
